FAERS Safety Report 6015221-4 (Version None)
Quarter: 2008Q4

REPORT INFORMATION
  Report Type: 
  Country: None (occurrence: None)
  Receive Date: 20081222
  Receipt Date: 20081211
  Transmission Date: 20090506
  Serious: Yes (Other)
  Sender: FDA-Public Use
  Company Number: US-JNJFOC-20081203664

PATIENT
  Age: 57 Year
  Sex: Male
  Weight: 181.44 kg

DRUGS (2)
  1. REMICADE [Suspect]
     Indication: PSORIATIC ARTHROPATHY
     Route: 042
  2. TUMS [Concomitant]
     Indication: DYSPEPSIA

REACTIONS (6)
  - DISINHIBITION [None]
  - ENERGY INCREASED [None]
  - INFUSION RELATED REACTION [None]
  - INSOMNIA [None]
  - RESTLESSNESS [None]
  - WEIGHT DECREASED [None]
